FAERS Safety Report 15878475 (Version 1)
Quarter: 2019Q1

REPORT INFORMATION
  Report Type: Spontaneous
  Country: US (occurrence: US)
  Receive Date: 20190128
  Receipt Date: 20190128
  Transmission Date: 20190417
  Serious: No
  Sender: FDA-Public Use
  Company Number: US-TEVA-2019-US-995349

PATIENT
  Sex: Female

DRUGS (1)
  1. CARVEDILOL. [Suspect]
     Active Substance: CARVEDILOL

REACTIONS (3)
  - Dizziness [Unknown]
  - Product substitution issue [Unknown]
  - Feeling abnormal [Unknown]
